FAERS Safety Report 7019093-0 (Version None)
Quarter: 2010Q3

REPORT INFORMATION
  Report Type: 
  Country: None (occurrence: None)
  Receive Date: 20100928
  Receipt Date: 20100922
  Transmission Date: 20110219
  Serious: Yes (Hospitalization, Other)
  Sender: FDA-Public Use
  Company Number: A0883506A

PATIENT
  Sex: Male
  Weight: 67 kg

DRUGS (2)
  1. PSOREX [Suspect]
     Indication: PRODUCT USED FOR UNKNOWN INDICATION
     Route: 061
     Dates: start: 20000101
  2. DIAZEPAM [Concomitant]
     Dosage: 2TAB TWICE PER DAY
     Dates: start: 19900101

REACTIONS (2)
  - NEOPLASM PROSTATE [None]
  - PROSTATIC OPERATION [None]
